FAERS Safety Report 18797887 (Version 1)
Quarter: 2021Q1

REPORT INFORMATION
  Report Type: Spontaneous
  Country: BR (occurrence: BR)
  Receive Date: 20210128
  Receipt Date: 20210128
  Transmission Date: 20210419
  Serious: Yes (Other)
  Sender: FDA-Public Use
  Company Number: BR-JNJFOC-20210138291

PATIENT
  Age: 26 Year
  Sex: Female
  Weight: 43 kg

DRUGS (2)
  1. HALDOL [Suspect]
     Active Substance: HALOPERIDOL
     Indication: ANXIETY
     Route: 048
  2. HALDOL [Suspect]
     Active Substance: HALOPERIDOL
     Indication: ANXIETY
     Dosage: 15 DROPS PER DAY
     Route: 048

REACTIONS (4)
  - Sensory disturbance [Unknown]
  - Toxicity to various agents [Unknown]
  - Neuroleptic malignant syndrome [Not Recovered/Not Resolved]
  - Urinary incontinence [Not Recovered/Not Resolved]
